FAERS Safety Report 9369042 (Version 1)
Quarter: 2013Q2

REPORT INFORMATION
  Report Type: Spontaneous
  Country: FR (occurrence: None)
  Receive Date: 20130621
  Receipt Date: 20130621
  Transmission Date: 20140414
  Serious: Yes (Hospitalization)
  Sender: FDA-Public Use
  Company Number: SYM-2013-04722

PATIENT
  Age: 47 Year
  Sex: Male

DRUGS (6)
  1. FLUOROURACIL [Suspect]
     Indication: ADENOCARCINOMA PANCREAS
  2. FLUOROURACIL [Suspect]
     Indication: METASTASES TO LIVER
  3. OXALIPLATIN (OXALIPLATIN) (OXALIPLATIN) [Suspect]
     Indication: ADENOCARCINOMA PANCREAS
  4. OXALIPLATIN (OXALIPLATIN) (OXALIPLATIN) [Suspect]
     Indication: METASTASES TO LIVER
  5. IRINOTECAN [Suspect]
     Indication: ADENOCARCINOMA PANCREAS
  6. IRINOTECAN [Suspect]
     Indication: METASTASES TO LIVER

REACTIONS (3)
  - Febrile neutropenia [None]
  - Aspergillus infection [None]
  - Lung infiltration [None]
